FAERS Safety Report 7812029-1 (Version None)
Quarter: 2011Q4

REPORT INFORMATION
  Report Type: 
  Country: None (occurrence: None)
  Receive Date: 20111011
  Receipt Date: 20110926
  Transmission Date: 20120403
  Serious: Yes (Hospitalization)
  Sender: FDA-Public Use
  Company Number: JP-2011-11621

PATIENT
  Age: 43 Year
  Sex: Male
  Weight: 77.3 kg

DRUGS (19)
  1. CYMBALTA [Concomitant]
  2. OMEPTOROL (OMEPRAZOLE) TABLET [Concomitant]
  3. COVERSYL (PERINDOPRIL ERBUMINE) TABLET [Concomitant]
  4. OLMESARTAN MEDOXOMIL [Concomitant]
  5. DOXAZOSIN MESYLATE [Concomitant]
  6. CARVEDILOL [Concomitant]
  7. LOXONIN (LOXOPROFEN SODIUM) TABLET [Concomitant]
  8. OPC-41061 (TOLVAPTAN) TABLET [Suspect]
     Dosage: SEE IMAGE
     Route: 048
     Dates: start: 20110526, end: 20110601
  9. OPC-41061 (TOLVAPTAN) TABLET [Suspect]
     Dosage: SEE IMAGE
     Route: 048
     Dates: start: 20110602, end: 20110608
  10. OPC-41061 (TOLVAPTAN) TABLET [Suspect]
     Dosage: SEE IMAGE
     Route: 048
     Dates: start: 20110609
  11. ATELEC (CILNIDIPINE) TABLET [Concomitant]
  12. ALLOPURINOL [Concomitant]
  13. GASMOTIN (MOSAPRIDE CITRATE) TABLET [Concomitant]
  14. SEDIEL (TANDOSPIRONE CITRATE) TABLET [Concomitant]
  15. ROHYPNOL (FLUNITRAZEPAM) TABLET [Concomitant]
  16. REFLEX (MIRTAZAPINE) TABLET [Concomitant]
  17. MEPTIN (PROCATEROL HYDROCHLORIDE) INHALATION VAPOUR [Concomitant]
  18. ADOAIR (FLUTICASONE PROPIONATE, SALMETEROL XINAFOATE) INHALATION VAPOU [Concomitant]
  19. HALCION [Concomitant]

REACTIONS (4)
  - RENAL CYST HAEMORRHAGE [None]
  - ANAEMIA [None]
  - RENAL PAIN [None]
  - HYPOPHAGIA [None]
